FAERS Safety Report 4610949-2 (Version None)
Quarter: 2005Q1

REPORT INFORMATION
  Report Type: 
  Country: None (occurrence: None)
  Receive Date: 20050315
  Receipt Date: 20050315
  Transmission Date: 20050727
  Serious: Yes (Hospitalization)
  Sender: FDA-Public Use
  Company Number: None

PATIENT
  Age: 57 Year
  Sex: Female
  Weight: 83 kg

DRUGS (2)
  1. CLONIDINE [Suspect]
     Indication: HYPERTENSION
     Dosage: 0.1MG BID AND Q6H PR  ORAL
     Route: 048
     Dates: start: 20050314, end: 20050314
  2. METOPROLOL [Suspect]
     Indication: HYPERTENSION
     Dosage: 100 BID
     Dates: start: 20050312, end: 20050312

REACTIONS (1)
  - HYPOTENSION [None]
